FAERS Safety Report 19901263 (Version 4)
Quarter: 2022Q3

REPORT INFORMATION
  Report Type: Report from Study
  Country: JP (occurrence: JP)
  Receive Date: 20210929
  Receipt Date: 20220914
  Transmission Date: 20221027
  Serious: Yes (Hospitalization)
  Sender: FDA-Public Use
  Company Number: JP-BIOGEN-2021BI00992633

PATIENT
  Age: 1 Year
  Sex: Male
  Weight: 9.2 kg

DRUGS (11)
  1. SPINRAZA [Suspect]
     Active Substance: NUSINERSEN
     Indication: Spinal muscular atrophy
     Route: 050
  2. SPINRAZA [Suspect]
     Active Substance: NUSINERSEN
     Dosage: THE DOSE WAS INCREASED ACCORDING TO AGE IN DAYS AS DESCRIBED IN THE LABELING.
     Route: 050
  3. SPINRAZA [Suspect]
     Active Substance: NUSINERSEN
     Dosage: THE DOSE WAS INCREASED ACCORDING TO AGE IN DAYS AS DESCRIBED IN THE LABELING.
     Route: 050
  4. SPINRAZA [Suspect]
     Active Substance: NUSINERSEN
     Dosage: THE DOSE WAS INCREASED ACCORDING TO AGE IN DAYS AS DESCRIBED IN THE LABELING.
     Route: 050
  5. SPINRAZA [Suspect]
     Active Substance: NUSINERSEN
     Dosage: EVERY 4 MONTHS AFTER 9 WEEKS FROM THE INITIAL ADMINISTRATION. THE DOSE WAS INCREASED ACCORDING TO...
     Route: 050
  6. SPINRAZA [Suspect]
     Active Substance: NUSINERSEN
     Route: 050
     Dates: start: 20190910, end: 20190910
  7. SPINRAZA [Suspect]
     Active Substance: NUSINERSEN
     Route: 050
     Dates: start: 20200121
  8. EMLA [Concomitant]
     Active Substance: LIDOCAINE\PRILOCAINE
     Indication: Anaesthesia procedure
     Dosage: TOTAL DAILY DOSE WAS REPORTED AS UNKNOWN.
     Route: 050
     Dates: start: 20190910
  9. PENTAZOCINE [Concomitant]
     Active Substance: PENTAZOCINE
     Indication: Anaesthesia procedure
     Route: 050
     Dates: start: 20190910
  10. HYDROXYZINE HYDROCHLORIDE [Concomitant]
     Active Substance: HYDROXYZINE HYDROCHLORIDE
     Indication: Anaesthesia procedure
     Route: 050
     Dates: start: 20190910
  11. MIDAZOLAM [Concomitant]
     Active Substance: MIDAZOLAM
     Indication: Anaesthesia procedure
     Route: 050
     Dates: start: 20190910

REACTIONS (3)
  - Inflammatory bowel disease [Not Recovered/Not Resolved]
  - Eczema herpeticum [Recovered/Resolved]
  - Pneumonia aspiration [Recovered/Resolved]

NARRATIVE: CASE EVENT DATE: 20191222
